FAERS Safety Report 9019437 (Version 3)
Quarter: 2013Q1

REPORT INFORMATION
  Report Type: Spontaneous
  Country: FR (occurrence: FR)
  Receive Date: 20130118
  Receipt Date: 20130131
  Transmission Date: 20140127
  Serious: Yes (Other)
  Sender: FDA-Public Use
  Company Number: FR-VERTEX PHARMACEUTICALS INC.-2013-000770

PATIENT
  Age: 50 None
  Sex: Male
  Weight: 68 kg

DRUGS (8)
  1. INCIVO [Suspect]
     Indication: HEPATITIS C
     Dosage: 2 TABLETS OF 375 MG 3 TIMES A DAY ONCE EVERY 8 HOURS
     Route: 048
     Dates: start: 20120515, end: 20120531
  2. INCIVO [Suspect]
     Indication: PRODUCT USED FOR UNKNOWN INDICATION
  3. PEGASYS [Suspect]
     Indication: HEPATITIS C
     Dosage: DOSAGE FORM: INJECTION
     Route: 058
     Dates: start: 20120515, end: 20120531
  4. RIBAVIRINE [Suspect]
     Indication: PRODUCT USED FOR UNKNOWN INDICATION
     Dosage: DOSAGE FORM: UNSPECIFIED
     Route: 048
     Dates: start: 20120515, end: 20120531
  5. RIBAVIRINE [Suspect]
     Indication: HEPATITIS C
  6. PARACETAMOL [Suspect]
     Indication: INFLUENZA LIKE ILLNESS
     Dosage: 2 DF, TID
     Route: 048
     Dates: start: 20120515, end: 20120531
  7. LANTUS [Concomitant]
     Indication: DIABETES MELLITUS
     Dosage: DOSAGE FORM: UNSPECIFIED
     Route: 058
     Dates: start: 2010
  8. JANUVIA [Concomitant]
     Indication: DIABETES MELLITUS
     Dosage: DOSAGE FORM: TABLET
     Route: 048
     Dates: start: 2011

REACTIONS (3)
  - Erythema [Recovered/Resolved]
  - Rash [Unknown]
  - Pruritus [Unknown]
